FAERS Safety Report 6094055-9 (Version None)
Quarter: 2009Q1

REPORT INFORMATION
  Report Type: 
  Country: None (occurrence: None)
  Receive Date: 20090224
  Receipt Date: 20090224
  Transmission Date: 20090719
  Serious: Yes (Other)
  Sender: FDA-Public Use
  Company Number: None

PATIENT
  Sex: Female
  Weight: 72.5755 kg

DRUGS (2)
  1. QUASENSE [Suspect]
     Indication: CONTRACEPTION
     Dosage: ONE PILL ONE TIME A DAY PO
     Route: 048
     Dates: start: 20080611, end: 20090217
  2. QUASENSE [Suspect]
     Indication: MENSTRUAL DISORDER
     Dosage: ONE PILL ONE TIME A DAY PO
     Route: 048
     Dates: start: 20080611, end: 20090217

REACTIONS (3)
  - MENORRHAGIA [None]
  - MIGRAINE [None]
  - THERAPEUTIC RESPONSE UNEXPECTED WITH DRUG SUBSTITUTION [None]
